FAERS Safety Report 10206547 (Version 1)
Quarter: 2014Q2

REPORT INFORMATION
  Report Type: Spontaneous
  Country: US (occurrence: US)
  Receive Date: 20140530
  Receipt Date: 20140530
  Transmission Date: 20141212
  Serious: No
  Sender: FDA-Public Use
  Company Number: US-BAYER-2014-079420

PATIENT
  Age: 68 Year
  Sex: Female
  Weight: 76 kg

DRUGS (6)
  1. CLIMARA [Suspect]
     Indication: HYSTERECTOMY
     Dosage: UNK
     Route: 062
  2. DILTIAZEM [Concomitant]
     Indication: HYPERTENSION
     Dosage: 240 MG, UNK
     Dates: start: 199901
  3. METOPROLOL [Concomitant]
     Indication: HYPERTENSION
     Dosage: 100 MG, BID
     Dates: start: 199901
  4. AMITRIPTYLINE [Concomitant]
     Indication: FIBROMYALGIA
     Dosage: UNK
     Dates: start: 1990
  5. LEVOTHYROXINE [Concomitant]
     Indication: HYPOTHYROIDISM
     Dosage: 10 MG, QD
     Dates: start: 1992
  6. RANITIDINE [Concomitant]
     Indication: HYPERCHLORHYDRIA
     Dosage: UNK
     Dates: start: 1970

REACTIONS (6)
  - Sluggishness [Not Recovered/Not Resolved]
  - Feeling abnormal [Not Recovered/Not Resolved]
  - Apraxia [Not Recovered/Not Resolved]
  - Palpitations [None]
  - Heart rate increased [Not Recovered/Not Resolved]
  - Product adhesion issue [None]
